FAERS Safety Report 6392934-6 (Version None)
Quarter: 2009Q4

REPORT INFORMATION
  Report Type: 
  Country: None (occurrence: None)
  Receive Date: 20091007
  Receipt Date: 20090921
  Transmission Date: 20100525
  Serious: No
  Sender: FDA-Public Use
  Company Number: US-ALLERGAN-0913157US

PATIENT
  Age: 54 Year
  Sex: Female

DRUGS (2)
  1. LATISSE [Suspect]
     Indication: GROWTH OF EYELASHES
     Dosage: UNK
     Route: 061
     Dates: start: 20090713, end: 20090913
  2. LATISSE [Suspect]
     Dosage: UNK
     Route: 061
     Dates: start: 20090914, end: 20090920

REACTIONS (2)
  - MADAROSIS [None]
  - TRICHORRHEXIS [None]
